FAERS Safety Report 14130852 (Version 3)
Quarter: 2018Q1

REPORT INFORMATION
  Report Type: Report from Study
  Country: US (occurrence: US)
  Receive Date: 20171026
  Receipt Date: 20180125
  Transmission Date: 20180508
  Serious: No
  Sender: FDA-Public Use
  Company Number: US-AMGEN-USASL2017110024

PATIENT
  Age: 46 Year
  Sex: Female

DRUGS (1)
  1. REPATHA [Suspect]
     Active Substance: EVOLOCUMAB
     Indication: HYPERCHOLESTEROLAEMIA
     Dosage: 420 MG/3.5ML, QMO
     Route: 065
     Dates: start: 20170718

REACTIONS (12)
  - Limb discomfort [Unknown]
  - Feeling abnormal [Unknown]
  - Pain in extremity [Unknown]
  - Application site papules [Unknown]
  - Abdominal pain [Unknown]
  - Application site erythema [Unknown]
  - Paraesthesia [Unknown]
  - Headache [Unknown]
  - Oropharyngeal pain [Unknown]
  - Pain [Unknown]
  - Muscle spasms [Unknown]
  - Wrong technique in product usage process [Unknown]

NARRATIVE: CASE EVENT DATE: 201707
